FAERS Safety Report 19063777 (Version 1)
Quarter: 2021Q1

REPORT INFORMATION
  Report Type: Spontaneous
  Country: US (occurrence: US)
  Receive Date: 20210326
  Receipt Date: 20210326
  Transmission Date: 20210420
  Serious: Yes (Hospitalization, Other)
  Sender: FDA-Public Use
  Company Number: US-FRESENIUS KABI-FK202103058

PATIENT
  Age: 50 Year
  Sex: Male

DRUGS (2)
  1. CLOMIFENE [Interacting]
     Active Substance: CLOMIPHENE
     Indication: HYPOGONADISM
     Route: 065
  2. ANASTROZOLE (MANUFACTURER UNKNOWN) [Suspect]
     Active Substance: ANASTROZOLE
     Indication: HYPOGONADISM
     Route: 065

REACTIONS (3)
  - Therapeutic product effect increased [Unknown]
  - Ventricular tachycardia [Unknown]
  - Drug interaction [Unknown]
